FAERS Safety Report 23210395 (Version 1)
Quarter: 2023Q4

REPORT INFORMATION
  Report Type: Report from Study
  Country: US (occurrence: US)
  Receive Date: 20231121
  Receipt Date: 20231121
  Transmission Date: 20240110
  Serious: Yes (Other)
  Sender: FDA-Public Use
  Company Number: US-JAZZ PHARMACEUTICALS-2023-US-008525

PATIENT
  Sex: Male

DRUGS (13)
  1. SODIUM OXYBATE [Suspect]
     Active Substance: SODIUM OXYBATE
     Indication: Narcolepsy
     Dosage: 6 GRAM, QD
  2. SODIUM OXYBATE [Suspect]
     Active Substance: SODIUM OXYBATE
     Indication: Cataplexy
  3. SODIUM OXYBATE [Suspect]
     Active Substance: SODIUM OXYBATE
     Indication: Somnolence
  4. NUVIGIL [Concomitant]
     Active Substance: ARMODAFINIL
     Dosage: 0000
     Dates: start: 20150924
  5. ALCOHOL [Concomitant]
     Active Substance: ALCOHOL
     Dosage: 0000
     Dates: start: 20150924
  6. LEVOTHYROXINE [Concomitant]
     Active Substance: LEVOTHYROXINE
     Dosage: 0010
     Dates: start: 20180809
  7. VALSARTAN [Concomitant]
     Active Substance: VALSARTAN
     Dosage: 0000
     Dates: start: 20220901
  8. HYDROCHLOROTHIAZIDE [Concomitant]
     Active Substance: HYDROCHLOROTHIAZIDE
     Dosage: 0000
     Dates: start: 20220901
  9. CLARITIN [Concomitant]
     Active Substance: LORATADINE
     Dosage: 0000
     Dates: start: 20220401
  10. GABAPENTIN [Concomitant]
     Active Substance: GABAPENTIN
     Dosage: 0000
     Dates: start: 20220701
  11. MAGNESIUM GLUCEPTATE [Concomitant]
     Active Substance: MAGNESIUM GLUCEPTATE
     Dosage: 0000
     Dates: start: 20221201
  12. ZINC ACETATE [Concomitant]
     Active Substance: ZINC ACETATE
     Dosage: 0000
     Dates: start: 20221201
  13. COENZYME Q10 [Concomitant]
     Active Substance: DIETARY SUPPLEMENT\UBIDECARENONE
     Dosage: 0000
     Dates: start: 20221201

REACTIONS (6)
  - Renal failure [Unknown]
  - Migraine [Unknown]
  - Renal cyst [Unknown]
  - Gout [Unknown]
  - Product dose omission issue [Unknown]
  - Intentional product misuse [Unknown]
